FAERS Safety Report 4536485-X (Version None)
Quarter: 2004Q4

REPORT INFORMATION
  Report Type: 
  Country: None (occurrence: None)
  Receive Date: 20041220
  Receipt Date: 20041214
  Transmission Date: 20050328
  Serious: Yes (Death)
  Sender: FDA-Public Use
  Company Number: OXYA20040005

PATIENT
  Age: 33 Year
  Sex: Male

DRUGS (2)
  1. OXYCODONE AND ACETAMINOPHEN [Suspect]
     Dates: start: 20030101, end: 20030101
  2. CROTALIDAE PLYVALENT IMMUNE FAB [Concomitant]

REACTIONS (9)
  - BRAIN OEDEMA [None]
  - BRONCHIAL OBSTRUCTION [None]
  - DEPRESSED LEVEL OF CONSCIOUSNESS [None]
  - INCREASED VISCOSITY OF BRONCHIAL SECRETION [None]
  - NARCOTIC INTOXICATION [None]
  - PULMONARY OEDEMA [None]
  - RESPIRATORY ARREST [None]
  - SNORING [None]
  - TRACHEAL OBSTRUCTION [None]
